FAERS Safety Report 25869279 (Version 1)
Quarter: 2025Q3

REPORT INFORMATION
  Report Type: Spontaneous
  Country: US (occurrence: None)
  Receive Date: 20250930
  Receipt Date: 20250930
  Transmission Date: 20251020
  Serious: Yes (Hospitalization)
  Sender: FDA-CTU
  Company Number: None

PATIENT
  Age: 90 Year
  Sex: Female
  Weight: 82 kg

DRUGS (2)
  1. OSELTAMIVIR [Suspect]
     Active Substance: OSELTAMIVIR
     Indication: Influenza
     Dosage: FREQUENCY : TWICE A DAY;?
     Route: 048
     Dates: start: 20250730, end: 20250731
  2. OSELTAMIVIR [Concomitant]
     Active Substance: OSELTAMIVIR
     Dates: start: 20250730, end: 20250731

REACTIONS (7)
  - Confusional state [None]
  - Hallucination [None]
  - Lethargy [None]
  - Asthenia [None]
  - Hallucination, auditory [None]
  - Delirium [None]
  - Delusion [None]

NARRATIVE: CASE EVENT DATE: 20250731
